FAERS Safety Report 26144626 (Version 1)
Quarter: 2025Q4

REPORT INFORMATION
  Report Type: Spontaneous
  Country: EU (occurrence: EU)
  Receive Date: 20251211
  Receipt Date: 20251211
  Transmission Date: 20260117
  Serious: Yes (Death)
  Sender: CHEPLAPHARM
  Company Number: None

PATIENT
  Age: 36 Year
  Sex: Male

DRUGS (7)
  1. OLANZAPINE [Suspect]
     Active Substance: OLANZAPINE
     Dates: end: 202310
  2. METHADONE HYDROCHLORIDE [Suspect]
     Active Substance: METHADONE HYDROCHLORIDE
     Dates: end: 202310
  3. CANNABIS SATIVA SUBSP. INDICA TOP [Suspect]
     Active Substance: CANNABIS SATIVA SUBSP. INDICA TOP
     Dates: end: 202310
  4. OXAZEPAM [Suspect]
     Active Substance: OXAZEPAM
     Dates: end: 202310
  5. TRIMEPRAZINE [Suspect]
     Active Substance: TRIMEPRAZINE
     Dates: end: 202310
  6. CYAMEMAZINE [Suspect]
     Active Substance: CYAMEMAZINE
     Dates: end: 202310
  7. DOXYLAMINE [Suspect]
     Active Substance: DOXYLAMINE
     Dates: end: 202310

REACTIONS (2)
  - Drug abuse [Fatal]
  - Overdose [Fatal]
